FAERS Safety Report 20491379 (Version 2)
Quarter: 2022Q1

REPORT INFORMATION
  Report Type: Spontaneous
  Country: FR (occurrence: None)
  Receive Date: 20220218
  Receipt Date: 20220307
  Transmission Date: 20220424
  Serious: Yes (Other)
  Sender: FDA-Public Use
  Company Number: FR-ROCHE-2984875

PATIENT
  Sex: Female
  Weight: 49.5 kg

DRUGS (11)
  1. ERIVEDGE [Suspect]
     Active Substance: VISMODEGIB
     Indication: Medulloblastoma
     Route: 048
  2. VINCRISTINE [Concomitant]
     Active Substance: VINCRISTINE
     Dosage: DATE OF TREATMENT 09/07/2021
  3. CYCLOPHOSPHAMIDE [Concomitant]
     Active Substance: CYCLOPHOSPHAMIDE
  4. ETOPOSIDE [Concomitant]
     Active Substance: ETOPOSIDE
     Dosage: D1 17/08 AND 13/9/21
  5. CARBOPLATIN [Concomitant]
     Active Substance: CARBOPLATIN
     Dosage: DOSE D1 ON 17/08 AND 13/9/21
  6. TOPOTECAN [Concomitant]
     Active Substance: TOPOTECAN HYDROCHLORIDE
     Dosage: D1 ON 14/10 AND 15/11/21:
  7. TEMODAL [Concomitant]
     Active Substance: TEMOZOLOMIDE
     Dosage: D1 ON 14/10 AND 15/11/21
  8. OXYCODONE [Concomitant]
     Active Substance: OXYCODONE
  9. OXYCODONE HYDROCHLORIDE [Concomitant]
     Active Substance: OXYCODONE HYDROCHLORIDE
  10. ACETAMINOPHEN [Concomitant]
     Active Substance: ACETAMINOPHEN
  11. POLYETHYLENE GLYCOL 4000 [Concomitant]
     Active Substance: POLYETHYLENE GLYCOL 4000

REACTIONS (9)
  - Off label use [Unknown]
  - Dysgeusia [Unknown]
  - Anaemia [Unknown]
  - White blood cell count decreased [Unknown]
  - White blood cell count decreased [Unknown]
  - Lymphocyte count decreased [Unknown]
  - Dry skin [Unknown]
  - Pruritus [Unknown]
  - Skin hyperpigmentation [Unknown]
